FAERS Safety Report 9931534 (Version 2)
Quarter: 2014Q2

REPORT INFORMATION
  Report Type: Spontaneous
  Country: FR (occurrence: None)
  Receive Date: 20140224
  Receipt Date: 20140428
  Transmission Date: 20141212
  Serious: Yes (Hospitalization)
  Sender: FDA-Public Use
  Company Number: 2014042444

PATIENT
  Age: 86 Year
  Sex: Female

DRUGS (10)
  1. FRAGMINE [Suspect]
     Dosage: 1X/DAY
     Route: 058
     Dates: start: 20131223, end: 20131231
  2. DALACIN (CLINDAMYCIN HYDROCHLORIDE) CAPSULE [Concomitant]
  3. REMINYL [Concomitant]
  4. STILNOX (ZOLPIDEM) [Concomitant]
  5. ODRIK (TRANDOLAPRIL) [Concomitant]
  6. CARDENSIEL (BISOPROLOL FUMARATE) [Concomitant]
  7. ALDACTAZINE (ALTIZIDE, SPIRONOLACTONE) [Concomitant]
  8. KARDEGIC (ACETYLSALICYLATE LYSINE) [Concomitant]
  9. PARIET (RABEPRAZOLE SODIUM) [Concomitant]
  10. SINGULAIR (MONTELUKAST SODIUM) TABLET [Concomitant]

REACTIONS (4)
  - Drug reaction with eosinophilia and systemic symptoms [None]
  - Rash [None]
  - Ankle fracture [None]
  - Blood creatinine increased [None]
